FAERS Safety Report 5231947-4 (Version None)
Quarter: 2007Q1

REPORT INFORMATION
  Report Type: 
  Country: None (occurrence: None)
  Receive Date: 20070206
  Receipt Date: 20070125
  Transmission Date: 20070707
  Serious: Yes (Hospitalization)
  Sender: FDA-Public Use
  Company Number: US-PFIZER INC-2007007503

PATIENT

DRUGS (4)
  1. SPIRONOLACTONE TABLET [Suspect]
     Indication: OEDEMA PERIPHERAL
     Dosage: DAILY DOSE:50MG-FREQ:DAILY
     Route: 048
     Dates: start: 20070104, end: 20070106
  2. BLINDED THERAPY [Suspect]
     Indication: IDIOPATHIC THROMBOCYTOPENIC PURPURA
     Dosage: FREQ:DAILY
     Route: 048
     Dates: start: 20061229, end: 20070106
  3. DANAZOL [Concomitant]
  4. METOPROLOL SUCCINATE [Concomitant]

REACTIONS (6)
  - ALANINE AMINOTRANSFERASE INCREASED [None]
  - HYPERKALAEMIA [None]
  - MALAISE [None]
  - RENAL FUNCTION TEST ABNORMAL [None]
  - SINUS BRADYCARDIA [None]
  - VOMITING [None]
